FAERS Safety Report 9669797 (Version 10)
Quarter: 2015Q3

REPORT INFORMATION
  Report Type: Spontaneous
  Country: US (occurrence: US)
  Receive Date: 20131105
  Receipt Date: 20150908
  Transmission Date: 20151125
  Serious: Yes (Hospitalization, Disabling, Other)
  Sender: FDA-Public Use
  Company Number: US-009507513-1311USA001121

PATIENT
  Sex: Female
  Weight: 63.39 kg

DRUGS (6)
  1. FOSAMAX [Suspect]
     Active Substance: ALENDRONATE SODIUM
     Indication: OSTEOPENIA
  2. GNC GLUCOSAMINE CHONDROTIN [Concomitant]
     Dosage: 500MG-400MG, UNK
     Dates: start: 2000
  3. FOSAMAX [Suspect]
     Active Substance: ALENDRONATE SODIUM
     Indication: OSTEOPOROSIS
     Dosage: 70 MG, QW
     Route: 048
     Dates: start: 200301, end: 201012
  4. ALENDRONATE SODIUM. [Suspect]
     Active Substance: ALENDRONATE SODIUM
     Dosage: 70 MG, UNK
     Route: 048
     Dates: start: 20081222, end: 20100410
  5. CENTRUM (MINERALS (UNSPECIFIED) (+) VITAMINS (UNSPECIFIED)) [Concomitant]
     Dosage: UNK UNK, QD
     Dates: start: 2000
  6. CALCIUM (UNSPECIFIED) (+) VITAMIN D (UNSPECIFIED) [Concomitant]
     Active Substance: CALCIUM CARBONATE\VITAMIN D
     Dosage: 600MG-400IU, UNK
     Dates: start: 2000

REACTIONS (46)
  - Medical device removal [Unknown]
  - Open reduction of fracture [Unknown]
  - Fall [Unknown]
  - Fungal infection [Unknown]
  - Bradycardia [Unknown]
  - Skin neoplasm excision [Unknown]
  - Orthostatic hypotension [Unknown]
  - Gallbladder disorder [Unknown]
  - Cataract operation [Unknown]
  - Osteoarthritis [Unknown]
  - Urinary tract infection [Unknown]
  - Anaemia [Unknown]
  - Femur fracture [Unknown]
  - Femur fracture [Unknown]
  - Cardiac disorder [Unknown]
  - Coeliac disease [Unknown]
  - Hypochromic anaemia [Not Recovered/Not Resolved]
  - Anticoagulation drug level abnormal [Unknown]
  - Surgery [Unknown]
  - Vaginal disorder [Unknown]
  - Adenotonsillectomy [Unknown]
  - Haemorrhage [Unknown]
  - Radius fracture [Unknown]
  - Clavicle fracture [Unknown]
  - Bradycardia [Unknown]
  - Bundle branch block left [Unknown]
  - Angiopathy [Unknown]
  - Visual impairment [Unknown]
  - Anticoagulation drug level below therapeutic [Unknown]
  - Open reduction of fracture [Unknown]
  - Internal fixation of fracture [Unknown]
  - Hypertension [Unknown]
  - Conduction disorder [Unknown]
  - Hot flush [Unknown]
  - Hyperlipidaemia [Unknown]
  - Haemorrhage [Unknown]
  - Intramedullary rod insertion [Unknown]
  - Fracture nonunion [Recovered/Resolved]
  - Basal cell carcinoma [Unknown]
  - Device intolerance [Unknown]
  - Low turnover osteopathy [Unknown]
  - Tooth disorder [Unknown]
  - Fall [Unknown]
  - Arthroscopy [Unknown]
  - Haematoma [Unknown]
  - Gastrooesophageal reflux disease [Unknown]

NARRATIVE: CASE EVENT DATE: 2004
